FAERS Safety Report 6299307-5 (Version None)
Quarter: 2009Q3

REPORT INFORMATION
  Report Type: 
  Country: None (occurrence: None)
  Receive Date: 20090806
  Receipt Date: 20090727
  Transmission Date: 20100115
  Serious: Yes (Hospitalization, Other)
  Sender: FDA-Public Use
  Company Number: SP-200001192

PATIENT
  Age: 61 Year
  Sex: Male

DRUGS (8)
  1. REMICADE [Suspect]
     Route: 041
  2. REMICADE [Suspect]
     Indication: RHEUMATOID ARTHRITIS
     Route: 041
  3. METHOTREXATE [Concomitant]
     Indication: RHEUMATOID ARTHRITIS
     Route: 065
     Dates: start: 19970101
  4. NSAIDS (NOS) [Concomitant]
     Indication: RHEUMATOID ARTHRITIS
     Route: 065
     Dates: start: 19970101
  5. GASTRIC PROTECTORS [Concomitant]
     Indication: DRUG USE FOR UNKNOWN INDICATION
     Route: 065
     Dates: start: 19970101
  6. DEFLAZACORT [Concomitant]
     Indication: RHEUMATOID ARTHRITIS
     Route: 065
     Dates: start: 19970101
  7. OMEPRAZOLE [Concomitant]
  8. ACETAMINOPHEN [Concomitant]

REACTIONS (4)
  - ASTHENIA [None]
  - HEPATOSPLENOMEGALY [None]
  - TRANSAMINASES INCREASED [None]
  - TUBERCULOSIS LIVER [None]
